FAERS Safety Report 14153756 (Version 2)
Quarter: 2018Q1

REPORT INFORMATION
  Report Type: Spontaneous
  Country: US (occurrence: US)
  Receive Date: 20171102
  Receipt Date: 20180201
  Transmission Date: 20180508
  Serious: No
  Sender: FDA-Public Use
  Company Number: US-SA-2017SA187586

PATIENT
  Sex: Female

DRUGS (2)
  1. PRALUENT [Suspect]
     Active Substance: ALIROCUMAB
     Route: 058
     Dates: start: 20170713, end: 20170713
  2. ALIROCUMAB PREFILLED PEN [Suspect]
     Active Substance: ALIROCUMAB
     Dates: start: 20170713, end: 20170713

REACTIONS (5)
  - Application site injury [Unknown]
  - Application site haemorrhage [Unknown]
  - Application site pain [Unknown]
  - Injury associated with device [Unknown]
  - Nervousness [Unknown]

NARRATIVE: CASE EVENT DATE: 20170713
